FAERS Safety Report 5569039-7 (Version None)
Quarter: 2007Q4

REPORT INFORMATION
  Report Type: 
  Country: None (occurrence: None)
  Receive Date: 20071220
  Receipt Date: 20070607
  Transmission Date: 20080405
  Serious: No
  Sender: FDA-Public Use
  Company Number: A0653189A

PATIENT
  Age: 88 Year
  Sex: Male

DRUGS (21)
  1. AVODART [Suspect]
     Indication: BENIGN PROSTATIC HYPERPLASIA
     Dosage: .5MG PER DAY
     Route: 048
     Dates: end: 20070526
  2. CONCURRENT MEDICATIONS [Suspect]
  3. UROXATRAL [Suspect]
     Dates: start: 20070531, end: 20070605
  4. LOTREL [Concomitant]
  5. LASIX [Concomitant]
     Dosage: 20MG PER DAY
  6. LIPITOR [Concomitant]
  7. CARDURA [Concomitant]
     Dosage: 4MG AT NIGHT
  8. ALLOPURINOL [Concomitant]
  9. PLAVIX [Concomitant]
     Dosage: 75MG AT NIGHT
  10. BLOOD PRESSURE MEDICATION [Concomitant]
  11. DIOVAN [Concomitant]
  12. FOLIC ACID [Concomitant]
  13. ATENOLOL [Concomitant]
  14. FISH OIL [Concomitant]
  15. CENTRUM SILVER MV [Concomitant]
  16. VITAMIN B-12 [Concomitant]
  17. SAW PALMETTO [Concomitant]
  18. PERCOCET [Concomitant]
  19. LUTEIN [Concomitant]
     Indication: MACULAR DEGENERATION
  20. METAMUCIL [Concomitant]
     Indication: CHANGE OF BOWEL HABIT
     Dosage: 5CAP PER DAY
  21. LIQUI-DOSS [Concomitant]

REACTIONS (6)
  - DRUG INEFFECTIVE [None]
  - DYSURIA [None]
  - MICTURITION URGENCY [None]
  - POLLAKIURIA [None]
  - URETHRAL STENOSIS [None]
  - URINARY RETENTION [None]
